FAERS Safety Report 12629305 (Version 1)
Quarter: 2016Q3

REPORT INFORMATION
  Report Type: Spontaneous
  Country: BE (occurrence: BE)
  Receive Date: 20160808
  Receipt Date: 20160808
  Transmission Date: 20161109
  Serious: Yes (Hospitalization, Other)
  Sender: FDA-Public Use
  Company Number: BE-MYLANLABS-2016M1029450

PATIENT

DRUGS (1)
  1. VANCOMYCIN MYLAN 500 MG [Suspect]
     Active Substance: VANCOMYCIN
     Indication: SURGERY
     Dosage: UNK
     Route: 065

REACTIONS (2)
  - Acute kidney injury [Unknown]
  - Medication error [Unknown]
